FAERS Safety Report 9331795 (Version 3)
Quarter: 2014Q1

REPORT INFORMATION
  Report Type: Spontaneous
  Country: IT (occurrence: None)
  Receive Date: 20130603
  Receipt Date: 20140225
  Transmission Date: 20141002
  Serious: Yes (Death, Hospitalization)
  Sender: FDA-Public Use
  Company Number: 2013MPI00273

PATIENT
  Age: 29 Year
  Sex: Male

DRUGS (5)
  1. ADCETRIS [Suspect]
     Indication: HODGKIN^S DISEASE
     Route: 042
     Dates: start: 20130308
  2. DELTACORTENE (PREDNISONE) [Concomitant]
  3. DIFLUCAN (FLUCONAZOLE) [Concomitant]
  4. ACICLOVIR (ACICLOVIR SODIUM) [Concomitant]
  5. VITAMIN K (VITAMIN K NOS) [Concomitant]

REACTIONS (4)
  - Hepatitis fulminant [None]
  - Acute hepatic failure [None]
  - Gastroenteritis [None]
  - Abdominal pain [None]
